FAERS Safety Report 15565519 (Version 1)
Quarter: 2018Q4

REPORT INFORMATION
  Report Type: Spontaneous
  Country: JP (occurrence: JP)
  Receive Date: 20181030
  Receipt Date: 20181030
  Transmission Date: 20190205
  Serious: Yes (Death, Life-Threatening, Hospitalization)
  Sender: FDA-Public Use
  Company Number: JP-ROCHE-1883401

PATIENT
  Age: 91 Year
  Sex: Female
  Weight: 31 kg

DRUGS (12)
  1. BENET [Suspect]
     Active Substance: RISEDRONATE SODIUM
     Indication: OSTEOPOROSIS
     Dosage: THE FRACTIONATION DOSE FREQUENCY IS UNCERTAIN.
     Route: 065
     Dates: start: 20111026, end: 20111115
  2. FOSAMAC [Suspect]
     Active Substance: ALENDRONATE SODIUM
     Indication: OSTEOPOROSIS
     Dosage: THE FRACTIONATION DOSE FREQUENCY IS UNCERTAIN (1 WEEK).
     Route: 048
     Dates: start: 20111115, end: 20120411
  3. CARNACULIN [Concomitant]
     Active Substance: KALLIDINOGENASE
     Route: 048
     Dates: start: 20160118, end: 20161013
  4. MERISLON [Concomitant]
     Active Substance: BETAHISTINE MESILATE
     Route: 048
     Dates: start: 20160118, end: 20161013
  5. JUVELA N [Concomitant]
     Active Substance: TOCOPHERYL NICOTINATE, D-.ALPHA.
     Route: 048
     Dates: start: 20160118
  6. REBAMIPIDE [Concomitant]
     Active Substance: REBAMIPIDE
     Indication: LUMBAR SPINAL STENOSIS
     Route: 048
     Dates: end: 20160927
  7. ALENDRONATE SODIUM HYDRATE [Suspect]
     Active Substance: ALENDRONATE SODIUM
     Indication: OSTEOPOROSIS
     Dosage: THE FRACTIONATION DOSE  FREQUENCY IS UNCERTAIN.
     Route: 048
     Dates: start: 20120411, end: 20160120
  8. DONEPEZIL HYDROCHLORIDE. [Concomitant]
     Active Substance: DONEPEZIL HYDROCHLORIDE
     Indication: DEMENTIA ALZHEIMER^S TYPE
     Route: 048
     Dates: start: 20160118, end: 20161004
  9. BLADDERON [Concomitant]
     Active Substance: FLAVOXATE
     Indication: POLLAKIURIA
     Route: 048
     Dates: start: 20160118, end: 20161004
  10. LOXOPROFEN NA [Concomitant]
     Active Substance: LOXOPROFEN SODIUM
     Indication: LUMBAR SPINAL STENOSIS
     Route: 048
     Dates: end: 20160917
  11. MAGMITT [Concomitant]
     Active Substance: MAGNESIUM OXIDE
     Indication: CONSTIPATION
     Route: 048
     Dates: start: 20160118, end: 20161014
  12. BONVIVA [Suspect]
     Active Substance: IBANDRONATE SODIUM
     Indication: OSTEOPOROSIS
     Dosage: MOST RECENT DOSE ON 14/SEP/2016.
     Route: 042
     Dates: start: 20160120, end: 20160914

REACTIONS (15)
  - Pneumonia aspiration [Unknown]
  - Pubis fracture [Unknown]
  - Gingival disorder [Unknown]
  - Device failure [Unknown]
  - Dry skin [Unknown]
  - Oral mucosal discolouration [Unknown]
  - Cardio-respiratory arrest [Fatal]
  - Dehydration [Unknown]
  - Palatal ulcer [Unknown]
  - Urine abnormality [Unknown]
  - Nasopharyngitis [Unknown]
  - Hypophagia [Unknown]
  - Mouth haemorrhage [Unknown]
  - Asthenia [Unknown]
  - Osteonecrosis of jaw [Unknown]

NARRATIVE: CASE EVENT DATE: 201608
